FAERS Safety Report 12688207 (Version 1)
Quarter: 2016Q3

REPORT INFORMATION
  Report Type: Spontaneous
  Country: US (occurrence: None)
  Receive Date: 20160825
  Receipt Date: 20160825
  Transmission Date: 20161109
  Serious: Yes (Disabling)
  Sender: FDA-Public Use
  Company Number: None

PATIENT
  Age: 38 Year
  Sex: Female
  Weight: 61.24 kg

DRUGS (2)
  1. AMPHETAMINE ER [Suspect]
     Active Substance: AMPHETAMINE
     Indication: HYPERSOMNIA
     Dosage: 90 CAPSULE(S) THREE TIMES A DAY TAKEN BY MOUTH
     Route: 048
     Dates: start: 20160308, end: 20160505
  2. ADDERALL [Concomitant]
     Active Substance: AMPHETAMINE ASPARTATE\AMPHETAMINE SULFATE\DEXTROAMPHETAMINE SACCHARATE\DEXTROAMPHETAMINE SULFATE

REACTIONS (12)
  - Crying [None]
  - Paranoia [None]
  - Nightmare [None]
  - Headache [None]
  - Depression [None]
  - Social avoidant behaviour [None]
  - Tremor [None]
  - Anxiety [None]
  - Grip strength decreased [None]
  - Product substitution issue [None]
  - Hyperphagia [None]
  - Palpitations [None]

NARRATIVE: CASE EVENT DATE: 20160429
